FAERS Safety Report 10045432 (Version 3)
Quarter: 2014Q2

REPORT INFORMATION
  Report Type: Spontaneous
  Country: GB (occurrence: GB)
  Receive Date: 20140328
  Receipt Date: 20140512
  Transmission Date: 20141212
  Serious: Yes (Other)
  Sender: FDA-Public Use
  Company Number: GB-PFIZER INC-2014086972

PATIENT
  Age: 19 Year
  Sex: Female

DRUGS (2)
  1. MISOPROSTOL [Suspect]
     Indication: ABORTION INDUCED
     Dosage: UNK
     Dates: start: 20130930, end: 20130930
  2. MIFEGYNE [Suspect]
     Indication: ABORTION INDUCED
     Dosage: 200 MG, UNK
     Route: 048
     Dates: start: 20130928, end: 20130928

REACTIONS (5)
  - Contusion [Recovered/Resolved]
  - Nail discolouration [Unknown]
  - Contusion [Recovering/Resolving]
  - Inappropriate schedule of drug administration [Unknown]
  - Off label use [Unknown]
